FAERS Safety Report 21244933 (Version 2)
Quarter: 2022Q3

REPORT INFORMATION
  Report Type: Spontaneous
  Country: US (occurrence: None)
  Receive Date: 20220823
  Receipt Date: 20220920
  Transmission Date: 20221027
  Serious: No
  Sender: FDA-Public Use
  Company Number: 2022A268304

PATIENT
  Sex: Male
  Weight: 100.2 kg

DRUGS (1)
  1. SYMBICORT [Suspect]
     Active Substance: BUDESONIDE\FORMOTEROL FUMARATE DIHYDRATE
     Indication: Asthma
     Dosage: DOSE 80/4.5 UG, FREQUENCY 2 PUFFS BID
     Route: 055
     Dates: start: 2022

REACTIONS (4)
  - Dyspnoea [Unknown]
  - Off label use [Unknown]
  - Device delivery system issue [Unknown]
  - Device malfunction [Unknown]
